FAERS Safety Report 9306809 (Version 1)
Quarter: 2013Q2

REPORT INFORMATION
  Report Type: Report from Study
  Country: US (occurrence: US)
  Receive Date: 20130523
  Receipt Date: 20130523
  Transmission Date: 20140414
  Serious: Yes (Hospitalization, Other)
  Sender: FDA-Public Use
  Company Number: US-US-EMD SERONO, INC.-7207095

PATIENT
  Age: 53 Year
  Sex: Female

DRUGS (1)
  1. REBIF [Suspect]
     Indication: MULTIPLE SCLEROSIS
     Route: 058
     Dates: start: 20120624

REACTIONS (4)
  - Pneumonia [Recovered/Resolved]
  - Multiple sclerosis relapse [Recovering/Resolving]
  - Motor dysfunction [Unknown]
  - Injection site urticaria [Recovered/Resolved]
